FAERS Safety Report 8962632 (Version 1)
Quarter: 2012Q4

REPORT INFORMATION
  Report Type: 
  Country: CA (occurrence: CA)
  Receive Date: 20121214
  Receipt Date: 20121214
  Transmission Date: 20130627
  Serious: No
  Sender: FDA-Public Use
  Company Number: CA-B.I. PHARMACEUTICALS,INC./RIDGEFIELD-2012-BI-01771BP

PATIENT
  Sex: Male
  Weight: 74.84 kg

DRUGS (2)
  1. MIRAPEX [Suspect]
     Indication: PARKINSON^S DISEASE
     Dates: start: 20030603, end: 20050112
  2. MIRAPEX [Suspect]
     Indication: RESTLESS LEGS SYNDROME

REACTIONS (14)
  - Impulse-control disorder [Unknown]
  - Nausea [Unknown]
  - Somnolence [Unknown]
  - Feeling abnormal [Unknown]
  - Lethargy [Unknown]
  - Asthenia [Unknown]
  - Nightmare [Unknown]
  - Depression suicidal [Unknown]
  - Anger [Unknown]
  - Excessive sexual fantasies [Unknown]
  - Disturbance in attention [Unknown]
  - Obsessive thoughts [Unknown]
  - Hypersexuality [Unknown]
  - Hallucination [Unknown]
